FAERS Safety Report 7227605-7 (Version None)
Quarter: 2011Q1

REPORT INFORMATION
  Report Type: 
  Country: None (occurrence: None)
  Receive Date: 20110114
  Receipt Date: 20110106
  Transmission Date: 20110831
  Serious: Yes (Hospitalization)
  Sender: FDA-Public Use
  Company Number: US-US-EMD SERONO, INC.-7033144

PATIENT
  Sex: Female
  Weight: 75 kg

DRUGS (6)
  1. OMEPRAZOLE [Concomitant]
     Indication: ABDOMINAL DISCOMFORT
  2. LISINOPRIL [Concomitant]
     Indication: HYPERTENSION
  3. AMITRIPTYLINE [Concomitant]
     Indication: MUSCLE SPASMS
  4. REBIF [Suspect]
     Indication: MULTIPLE SCLEROSIS
     Route: 058
     Dates: start: 20100924
  5. AMITRIPTYLINE [Concomitant]
     Indication: DEPRESSION
  6. PRAVASTATIN [Concomitant]
     Indication: BLOOD CHOLESTEROL INCREASED

REACTIONS (6)
  - INFLUENZA LIKE ILLNESS [None]
  - INJECTION SITE PAIN [None]
  - CENTRAL NERVOUS SYSTEM LESION [None]
  - CYSTITIS [None]
  - INJECTION SITE ERYTHEMA [None]
  - INTESTINAL PERFORATION [None]
